FAERS Safety Report 9737220 (Version 2)
Quarter: 2014Q1

REPORT INFORMATION
  Report Type: Spontaneous
  Country: IL (occurrence: IL)
  Receive Date: 20131206
  Receipt Date: 20140110
  Transmission Date: 20141002
  Serious: Yes (Other)
  Sender: FDA-Public Use
  Company Number: IL-PFIZER INC-2013348865

PATIENT
  Age: 69 Year
  Sex: Female

DRUGS (1)
  1. SOMAVERT [Suspect]
     Dosage: 10 MG, UNK

REACTIONS (1)
  - Femur fracture [Unknown]
